FAERS Safety Report 25129327 (Version 2)
Quarter: 2025Q3

REPORT INFORMATION
  Report Type: Spontaneous
  Country: EU (occurrence: EU)
  Receive Date: 20250327
  Receipt Date: 20250909
  Transmission Date: 20251021
  Serious: Yes (Life-Threatening, Hospitalization, Other)
  Sender: AUROBINDO
  Company Number: EU-AUROBINDO-AUR-APL-2025-015626

PATIENT
  Age: 69 Year
  Sex: Male

DRUGS (20)
  1. MYCOPHENOLIC ACID [Suspect]
     Active Substance: MYCOPHENOLIC ACID
     Indication: VEXAS syndrome
     Route: 065
     Dates: start: 2010
  2. MYCOPHENOLIC ACID [Suspect]
     Active Substance: MYCOPHENOLIC ACID
     Route: 065
     Dates: start: 2014
  3. CYCLOSPORINE [Suspect]
     Active Substance: CYCLOSPORINE
     Indication: VEXAS syndrome
     Route: 065
     Dates: start: 2014
  4. RITUXIMAB [Suspect]
     Active Substance: RITUXIMAB
     Indication: VEXAS syndrome
     Route: 065
     Dates: start: 2014
  5. RITUXIMAB [Suspect]
     Active Substance: RITUXIMAB
     Route: 065
     Dates: start: 2016
  6. TACROLIMUS [Suspect]
     Active Substance: TACROLIMUS
     Indication: VEXAS syndrome
     Route: 065
     Dates: start: 2014
  7. TACROLIMUS [Suspect]
     Active Substance: TACROLIMUS
     Route: 065
     Dates: start: 2019, end: 2019
  8. TOFACITINIB [Suspect]
     Active Substance: TOFACITINIB
     Indication: VEXAS syndrome
     Route: 065
     Dates: start: 2014
  9. TOFACITINIB [Suspect]
     Active Substance: TOFACITINIB
     Route: 065
     Dates: start: 2019
  10. PREDNISONE [Suspect]
     Active Substance: PREDNISONE
     Indication: Scleritis
     Route: 048
  11. PREDNISONE [Suspect]
     Active Substance: PREDNISONE
     Indication: Neutrophilic dermatosis
     Dosage: 10 MILLIGRAM, ONCE A DAY
     Route: 048
     Dates: start: 2010
  12. PREDNISONE [Suspect]
     Active Substance: PREDNISONE
     Indication: VEXAS syndrome
     Dosage: 7.5 MILLIGRAM, ONCE A DAY
     Route: 048
     Dates: start: 2014
  13. PREDNISONE [Suspect]
     Active Substance: PREDNISONE
     Dosage: 10 MILLIGRAM, ONCE A DAY
     Route: 048
     Dates: start: 2015
  14. METHOTREXATE [Concomitant]
     Active Substance: METHOTREXATE
     Indication: Scleritis
     Route: 048
     Dates: start: 2010
  15. METHOTREXATE [Concomitant]
     Active Substance: METHOTREXATE
     Indication: VEXAS syndrome
  16. FOLIC ACID [Concomitant]
     Active Substance: FOLIC ACID
     Indication: Anaemia macrocytic
     Route: 065
  17. ERYTHROPOIETIN [Concomitant]
     Active Substance: ERYTHROPOIETIN
     Indication: Anaemia macrocytic
     Route: 065
  18. ETANERCEPT [Concomitant]
     Active Substance: ETANERCEPT
     Indication: VEXAS syndrome
     Route: 065
     Dates: start: 2010
  19. TOCILIZUMAB [Concomitant]
     Active Substance: TOCILIZUMAB
     Indication: VEXAS syndrome
     Route: 058
     Dates: start: 2015
  20. SARILUMAB [Concomitant]
     Active Substance: SARILUMAB
     Indication: VEXAS syndrome
     Route: 065

REACTIONS (5)
  - VEXAS syndrome [Not Recovered/Not Resolved]
  - Condition aggravated [Not Recovered/Not Resolved]
  - Drug intolerance [Unknown]
  - Off label use [Unknown]
  - Drug ineffective for unapproved indication [Unknown]

NARRATIVE: CASE EVENT DATE: 20100101
